FAERS Safety Report 24120457 (Version 1)
Quarter: 2024Q3

REPORT INFORMATION
  Report Type: Spontaneous
  Country: CA (occurrence: CA)
  Receive Date: 20240722
  Receipt Date: 20240722
  Transmission Date: 20241016
  Serious: Yes (Other)
  Sender: GENMAB
  Company Number: CA-ABBVIE-5840982

PATIENT
  Sex: Male

DRUGS (1)
  1. EPKINLY [Suspect]
     Active Substance: EPCORITAMAB-BYSP
     Indication: High-grade B-cell lymphoma
     Dosage: 48 MG, EVERY 1 WEEKS
     Route: 058

REACTIONS (2)
  - High-grade B-cell lymphoma [Unknown]
  - Drug ineffective [Unknown]
